FAERS Safety Report 12310323 (Version 1)
Quarter: 2016Q2

REPORT INFORMATION
  Report Type: Spontaneous
  Country: LB (occurrence: LB)
  Receive Date: 20160427
  Receipt Date: 20160427
  Transmission Date: 20160815
  Serious: Yes (Death)
  Sender: FDA-Public Use
  Company Number: LB-NOVOPROD-486269

PATIENT
  Age: 78 Year
  Sex: Male

DRUGS (2)
  1. FIBRINOGENE [Concomitant]
     Indication: HAEMORRHAGE
     Dosage: UNK
  2. NOVOSEVEN [Suspect]
     Active Substance: COAGULATION FACTOR VIIA RECOMBINANT HUMAN
     Indication: POST PROCEDURAL HAEMORRHAGE
     Dosage: 90 ?G/KG, BID
     Route: 065

REACTIONS (3)
  - Off label use [Unknown]
  - Hypotension [Fatal]
  - Drug effect incomplete [Unknown]
